FAERS Safety Report 15648904 (Version 2)
Quarter: 2018Q4

REPORT INFORMATION
  Report Type: Report from Study
  Country: US (occurrence: US)
  Receive Date: 20181122
  Receipt Date: 20181126
  Transmission Date: 20190205
  Serious: No
  Sender: FDA-Public Use
  Company Number: US-ACADIA PHARMACEUTICALS INC.-ACA-2018-010647

PATIENT
  Sex: Male

DRUGS (2)
  1. NUPLAZID [Suspect]
     Active Substance: PIMAVANSERIN TARTRATE
     Indication: PLASMA CELL MYELOMA
     Dosage: 34 MG, QD
     Route: 048
  2. NUPLAZID [Suspect]
     Active Substance: PIMAVANSERIN TARTRATE
     Dosage: DOSE REDUCED FROM 34MG TO UNKNOWN DOSAGE
     Route: 048

REACTIONS (4)
  - Peripheral swelling [Unknown]
  - Nonspecific reaction [Unknown]
  - Off label use [Unknown]
  - Prescribed underdose [Unknown]
